FAERS Safety Report 12504705 (Version 2)
Quarter: 2016Q3

REPORT INFORMATION
  Report Type: Spontaneous
  Country: US (occurrence: US)
  Receive Date: 20160628
  Receipt Date: 20160824
  Transmission Date: 20161109
  Serious: Yes (Other)
  Sender: FDA-Public Use
  Company Number: US-JNJFOC-20160621749

PATIENT
  Age: 42 Year
  Sex: Female
  Weight: 95.71 kg

DRUGS (1)
  1. SIMPONI [Suspect]
     Active Substance: GOLIMUMAB
     Indication: COLITIS ULCERATIVE
     Route: 058
     Dates: start: 20160615

REACTIONS (2)
  - Cellulitis [Recovering/Resolving]
  - Phlebitis [Unknown]

NARRATIVE: CASE EVENT DATE: 20160615
